FAERS Safety Report 4365685-7 (Version None)
Quarter: 2004Q2

REPORT INFORMATION
  Report Type: 
  Country: None (occurrence: None)
  Receive Date: 20040527
  Receipt Date: 20040517
  Transmission Date: 20050107
  Serious: Yes (Hospitalization)
  Sender: FDA-Public Use
  Company Number: PHFR2004GB02161

PATIENT
  Age: 35 Year
  Sex: Female

DRUGS (6)
  1. DICLOFENAC SODIUM [Suspect]
     Indication: PAIN
     Dosage: 50 MG, TID
     Route: 048
     Dates: start: 20040228, end: 20040301
  2. INNOHEP [Suspect]
     Indication: PROPHYLAXIS
     Dosage: 3500 IU, QD
     Route: 058
     Dates: start: 20040226, end: 20040229
  3. VITAMIN K TAB [Concomitant]
     Indication: INTERNATIONAL NORMALISED RATIO INCREASED
     Dosage: 10MG/DAY
     Route: 048
  4. CHLORPHENIRAMINE MALEATE [Concomitant]
     Indication: DIZZINESS
     Route: 048
  5. ACETAMINOPHEN [Concomitant]
     Dosage: 1 G, QID
     Dates: start: 20040226, end: 20040304
  6. CODEINE [Concomitant]
     Dosage: 30-60MG QDS
     Route: 048
     Dates: start: 20040226, end: 20040304

REACTIONS (2)
  - BLISTER [None]
  - ERYTHEMA [None]
